FAERS Safety Report 15115323 (Version 2)
Quarter: 2018Q3

REPORT INFORMATION
  Report Type: Report from Study
  Country: GB (occurrence: GB)
  Receive Date: 20180706
  Receipt Date: 20180726
  Transmission Date: 20181010
  Serious: Yes (Death)
  Sender: FDA-Public Use
  Company Number: GB-VERTEX PHARMACEUTICALS-2018-004635

PATIENT

DRUGS (2)
  1. ORKAMBI [Suspect]
     Active Substance: IVACAFTOR\LUMACAFTOR
     Dosage: FULL DOSE
     Route: 048
     Dates: start: 2016
  2. ORKAMBI [Suspect]
     Active Substance: IVACAFTOR\LUMACAFTOR
     Indication: CYSTIC FIBROSIS
     Dosage: HALF DOSE
     Route: 048
     Dates: start: 201602, end: 2016

REACTIONS (4)
  - Respiratory failure [Fatal]
  - Cough [Unknown]
  - Dysgeusia [Unknown]
  - Sputum increased [Unknown]

NARRATIVE: CASE EVENT DATE: 2016
